FAERS Safety Report 9765285 (Version 1)
Quarter: 2013Q4

REPORT INFORMATION
  Report Type: Spontaneous
  Country: US (occurrence: US)
  Receive Date: 20131217
  Receipt Date: 20131217
  Transmission Date: 20140711
  Serious: No
  Sender: FDA-Public Use
  Company Number: US-GLAXOSMITHKLINE-A1005119A

PATIENT
  Age: 74 Year
  Sex: Male

DRUGS (2)
  1. VOTRIENT [Suspect]
     Indication: PRODUCT USED FOR UNKNOWN INDICATION
     Dosage: 600MG PER DAY
     Route: 065
     Dates: start: 20121126
  2. BLOOD PRESSURE MEDICATION [Concomitant]

REACTIONS (4)
  - Fatigue [Unknown]
  - Constipation [Unknown]
  - Pain [Unknown]
  - Hypertension [Unknown]
